FAERS Safety Report 9603327 (Version 1)
Quarter: 2013Q4

REPORT INFORMATION
  Report Type: Spontaneous
  Country: GB (occurrence: GB)
  Receive Date: 20131007
  Receipt Date: 20131007
  Transmission Date: 20140711
  Serious: Yes (Other)
  Sender: FDA-Public Use
  Company Number: GB-TEVA-434920ISR

PATIENT
  Age: 51 Year
  Sex: Female
  Weight: 58.06 kg

DRUGS (2)
  1. LEVOTHYROXINE [Suspect]
     Indication: HYPOTHYROIDISM
     Route: 048
     Dates: start: 19970101
  2. EVOREL CONTI [Concomitant]

REACTIONS (2)
  - Anal pruritus [Recovered/Resolved]
  - Pruritus [Recovered/Resolved]
